FAERS Safety Report 24364163 (Version 1)
Quarter: 2024Q3

REPORT INFORMATION
  Report Type: Spontaneous
  Country: US (occurrence: US)
  Receive Date: 20240925
  Receipt Date: 20240925
  Transmission Date: 20241016
  Serious: Yes (Hospitalization)
  Sender: ABBVIE
  Company Number: US-ABBVIE-5931157

PATIENT
  Sex: Male

DRUGS (14)
  1. HUMIRA [Suspect]
     Active Substance: ADALIMUMAB
     Indication: Product used for unknown indication
     Route: 058
  2. RITUXAN [Suspect]
     Active Substance: RITUXIMAB
     Indication: Product used for unknown indication
     Route: 065
  3. OXYCODONE [Suspect]
     Active Substance: OXYCODONE
     Indication: Product used for unknown indication
     Route: 065
  4. XELJANZ XR [Suspect]
     Active Substance: TOFACITINIB CITRATE
     Indication: Product used for unknown indication
     Route: 048
  5. XELJANZ XR [Suspect]
     Active Substance: TOFACITINIB CITRATE
     Indication: Product used for unknown indication
     Route: 048
  6. PREDNISONE [Concomitant]
     Active Substance: PREDNISONE
     Indication: Product used for unknown indication
  7. PERCOCET [Concomitant]
     Active Substance: ACETAMINOPHEN\OXYCODONE HYDROCHLORIDE
     Indication: Product used for unknown indication
  8. ATORVASTATIN [Concomitant]
     Active Substance: ATORVASTATIN
     Indication: Product used for unknown indication
  9. CALCIUM [Concomitant]
     Active Substance: CALCIUM
     Indication: Product used for unknown indication
  10. ALENDRONATE SODIUM [Concomitant]
     Active Substance: ALENDRONATE SODIUM
     Indication: Product used for unknown indication
  11. TAMSULOSIN HYDROCHLORIDE [Concomitant]
     Active Substance: TAMSULOSIN HYDROCHLORIDE
     Indication: Product used for unknown indication
  12. OMEPRAZOLE [Concomitant]
     Active Substance: OMEPRAZOLE
     Indication: Product used for unknown indication
  13. MIRTAZAPINE [Concomitant]
     Active Substance: MIRTAZAPINE
     Indication: Product used for unknown indication
  14. LISINOPRIL [Concomitant]
     Active Substance: LISINOPRIL
     Indication: Product used for unknown indication

REACTIONS (10)
  - Abdominal pain upper [Not Recovered/Not Resolved]
  - Nausea [Unknown]
  - Blood sodium decreased [Unknown]
  - Insomnia [Unknown]
  - Drug ineffective [Unknown]
  - Drug ineffective [Unknown]
  - Illness [Unknown]
  - Therapeutic product effect incomplete [Unknown]
  - Pain [Not Recovered/Not Resolved]
  - Rheumatoid arthritis [Unknown]
